FAERS Safety Report 17206257 (Version 7)
Quarter: 2020Q2

REPORT INFORMATION
  Report Type: Spontaneous
  Country: PT (occurrence: PT)
  Receive Date: 20191227
  Receipt Date: 20200630
  Transmission Date: 20200713
  Serious: Yes (Hospitalization, Disabling, Other)
  Sender: FDA-Public Use
  Company Number: PT-AUROBINDO-AUR-APL-2019-107052

PATIENT
  Age: 67 Year
  Sex: Female

DRUGS (5)
  1. SIMVASTATIN 20MG [Suspect]
     Active Substance: SIMVASTATIN
     Indication: HYPERCHOLESTEROLAEMIA
     Dosage: 20 MILLIGRAM, ONCE A DAY
     Route: 065
  2. ATENOLOL;CHLORTHALIDONE [Concomitant]
     Indication: ESSENTIAL HYPERTENSION
     Dosage: 1 DOSAGE FORM, ONCE A DAY
     Route: 065
  3. ALLOPURINOL TABLETS [Suspect]
     Active Substance: ALLOPURINOL
     Indication: GOUT
     Dosage: 150 MILLIGRAM, ONCE A DAY
     Route: 048
  4. ATENOLOL;CHLORTHALIDONE [Concomitant]
     Indication: HYPERTENSION
     Dosage: 100/25 MILLIGRAM, ONCE A DAY (100/25 MG, QD)
     Route: 065
  5. ALLOPURINOL. [Suspect]
     Active Substance: ALLOPURINOL
     Indication: GOUT
     Dosage: 150 MILLIGRAM, ONCE A DAY
     Route: 065

REACTIONS (10)
  - Myalgia [Recovering/Resolving]
  - Back pain [Unknown]
  - Myopathy [Recovering/Resolving]
  - Asthenia [Recovering/Resolving]
  - Immune-mediated myositis [Recovered/Resolved]
  - Hepatic steatosis [Recovering/Resolving]
  - Thyroid mass [Recovering/Resolving]
  - Erythema [Recovering/Resolving]
  - Quadriparesis [Recovering/Resolving]
  - Muscular weakness [Recovering/Resolving]
